FAERS Safety Report 15366744 (Version 1)
Quarter: 2018Q3

REPORT INFORMATION
  Report Type: Report from Study
  Country: US (occurrence: US)
  Receive Date: 20180910
  Receipt Date: 20180910
  Transmission Date: 20181010
  Serious: Yes (Other)
  Sender: FDA-Public Use
  Company Number: US-SA-2016SA070633

PATIENT
  Age: 57 Year
  Sex: Female
  Weight: 54 kg

DRUGS (15)
  1. ALEMTUZUMAB [Suspect]
     Active Substance: ALEMTUZUMAB
     Indication: MULTIPLE SCLEROSIS
     Dosage: 12 MG,QD
     Route: 041
     Dates: start: 20160307, end: 20160311
  2. CETIRIZINE [Concomitant]
     Active Substance: CETIRIZINE HYDROCHLORIDE
     Indication: ANTIALLERGIC THERAPY
     Dosage: 10 MG,QD
     Route: 048
  3. RANITIDINE. [Concomitant]
     Active Substance: RANITIDINE
     Indication: ANTIALLERGIC THERAPY
     Dosage: 150 MG,BID
     Route: 048
  4. SODIUM CHLORIDE. [Concomitant]
     Active Substance: SODIUM CHLORIDE
     Indication: FLUID REPLACEMENT
     Dosage: 1 L,QD
     Route: 042
     Dates: start: 20160307, end: 20160311
  5. CARBAMAZEPINE. [Concomitant]
     Active Substance: CARBAMAZEPINE
     Dosage: 100 MG,BID
     Route: 048
     Dates: start: 20151007
  6. MELOXICAM. [Concomitant]
     Active Substance: MELOXICAM
     Dosage: 15 MG,UNK
     Dates: start: 20141010
  7. MYCOPHENOLATE MOFETIL. [Concomitant]
     Active Substance: MYCOPHENOLATE MOFETIL
     Dosage: 250 MG,QD
     Route: 048
     Dates: start: 20140805
  8. IBUPROFEN. [Concomitant]
     Active Substance: IBUPROFEN
     Indication: PAIN
     Dosage: 200 MG,PRN
     Dates: start: 20150128
  9. METHYLPREDNISOLONE. [Suspect]
     Active Substance: METHYLPREDNISOLONE
     Dosage: 1 G,QD
     Route: 042
     Dates: start: 20160307, end: 20160311
  10. MODAFINIL. [Concomitant]
     Active Substance: MODAFINIL
     Dosage: 100 MG,BID
     Route: 048
     Dates: start: 20150908
  11. ACICLOVIR [Concomitant]
     Active Substance: ACYCLOVIR
     Dosage: UNK
     Dates: start: 201603
  12. VICODIN [Concomitant]
     Active Substance: ACETAMINOPHEN\HYDROCODONE BITARTRATE
     Indication: PAIN
     Dosage: UNK UNK,PRN
     Route: 048
     Dates: start: 20130307
  13. CALCIUM [Concomitant]
     Active Substance: CALCIUM
     Dosage: 1 DF,QD
     Route: 048
     Dates: start: 20130307
  14. CLONAZEPAM. [Concomitant]
     Active Substance: CLONAZEPAM
     Dosage: 1 DF,QD
     Route: 048
     Dates: start: 20130307
  15. VITAMIN D3 [Concomitant]
     Active Substance: CHOLECALCIFEROL
     Dosage: 5000 DF,QD
     Route: 048
     Dates: start: 20130307

REACTIONS (21)
  - Respiration abnormal [Recovered/Resolved]
  - Urinary tract infection [Recovered/Resolved]
  - Pneumonia mycoplasmal [Recovered/Resolved]
  - Paranasal sinus hypersecretion [Not Recovered/Not Resolved]
  - Decreased appetite [Not Recovered/Not Resolved]
  - Headache [Recovered/Resolved]
  - Insomnia [Recovered/Resolved]
  - Urinary incontinence [Unknown]
  - Oesophageal pain [Not Recovered/Not Resolved]
  - Chest discomfort [Unknown]
  - Pyrexia [Recovered/Resolved]
  - Tachycardia [Recovered/Resolved]
  - Flushing [Unknown]
  - Weight decreased [Not Recovered/Not Resolved]
  - Insomnia [Unknown]
  - Pain [Unknown]
  - Ocular discomfort [Recovered/Resolved]
  - Gait disturbance [Not Recovered/Not Resolved]
  - Chest pain [Not Recovered/Not Resolved]
  - Fatigue [Not Recovered/Not Resolved]
  - Tooth fracture [Not Recovered/Not Resolved]

NARRATIVE: CASE EVENT DATE: 2016
